FAERS Safety Report 5004356-0 (Version None)
Quarter: 2006Q2

REPORT INFORMATION
  Report Type: 
  Country: None (occurrence: None)
  Receive Date: 20060517
  Receipt Date: 20060428
  Transmission Date: 20061013
  Serious: Yes (Life-Threatening, Hospitalization)
  Sender: FDA-Public Use
  Company Number: JP-JPN-A200601447

PATIENT
  Age: 67 Year
  Sex: Male
  Weight: 57 kg

DRUGS (7)
  1. PAXIL [Suspect]
     Indication: ANXIETY
     Dosage: 10MG TWICE PER DAY
     Route: 048
     Dates: start: 20060303, end: 20060330
  2. HYPEN [Concomitant]
     Indication: CERVICAL MYELOPATHY
     Dosage: 200MG TWICE PER DAY
     Route: 048
     Dates: start: 20060222, end: 20060330
  3. CERCINE [Concomitant]
     Indication: ANXIETY DISORDER
     Dosage: 5MG PER DAY
     Route: 048
     Dates: start: 20060309, end: 20060330
  4. MUCOSTA [Concomitant]
     Indication: GASTRITIS
     Dosage: 100MG TWICE PER DAY
     Route: 048
     Dates: start: 20060222, end: 20060330
  5. LENDORMIN [Concomitant]
     Indication: INSOMNIA
     Dosage: .25MG PER DAY
     Route: 048
     Dates: start: 20060222, end: 20060330
  6. FLOMAX [Concomitant]
     Indication: UPPER RESPIRATORY TRACT INFLAMMATION
     Dosage: 300MG PER DAY
     Route: 048
     Dates: start: 20060328, end: 20060330
  7. PL [Concomitant]
     Indication: UPPER RESPIRATORY TRACT INFLAMMATION
     Dosage: 3G PER DAY
     Route: 048
     Dates: start: 20060328, end: 20060330

REACTIONS (5)
  - BLOOD LACTATE DEHYDROGENASE INCREASED [None]
  - CHILLS [None]
  - CYANOSIS [None]
  - INTERSTITIAL LUNG DISEASE [None]
  - PYREXIA [None]
